FAERS Safety Report 21105236 (Version 1)
Quarter: 2022Q3

REPORT INFORMATION
  Report Type: Spontaneous
  Country: US (occurrence: None)
  Receive Date: 20220719
  Receipt Date: 20220719
  Transmission Date: 20221026
  Serious: Yes (Other)
  Sender: FDA-Public Use
  Company Number: None

PATIENT
  Age: 4 Year
  Sex: Male
  Weight: 13.5 kg

DRUGS (4)
  1. MIRALAX [Suspect]
     Active Substance: POLYETHYLENE GLYCOL 3350
     Indication: Constipation
     Dosage: FREQUENCY : AT BEDTIME;?
     Route: 048
     Dates: start: 20220704, end: 20220719
  2. MIRALAX [Suspect]
     Active Substance: POLYETHYLENE GLYCOL 3350
     Indication: Gastrointestinal hypomotility
  3. SENNA [Concomitant]
     Active Substance: SENNA LEAF\SENNOSIDES\SENNOSIDES A AND B
  4. ATENOLOL [Concomitant]
     Active Substance: ATENOLOL

REACTIONS (8)
  - Intentional self-injury [None]
  - Agitation [None]
  - Asterixis [None]
  - Eye movement disorder [None]
  - Dyskinesia [None]
  - Eye injury [None]
  - Repetitive speech [None]
  - Aphasia [None]

NARRATIVE: CASE EVENT DATE: 20220719
